FAERS Safety Report 10088951 (Version 1)
Quarter: 2014Q2

REPORT INFORMATION
  Report Type: Spontaneous
  Country: US (occurrence: US)
  Receive Date: 20140421
  Receipt Date: 20140421
  Transmission Date: 20141212
  Serious: Yes (Other)
  Sender: FDA-Public Use
  Company Number: US-DRREDDYS-USA/USA/14/0038299

PATIENT
  Age: 23 Year
  Sex: Male

DRUGS (1)
  1. ZENATANE [Suspect]
     Indication: PRODUCT USED FOR UNKNOWN INDICATION
     Route: 065
     Dates: start: 20130718, end: 20140131

REACTIONS (1)
  - Convulsion [Unknown]
